FAERS Safety Report 16662735 (Version 1)
Quarter: 2019Q3

REPORT INFORMATION
  Report Type: Report from Study
  Country: US (occurrence: US)
  Receive Date: 20190802
  Receipt Date: 20190802
  Transmission Date: 20191004
  Serious: No
  Sender: FDA-Public Use
  Company Number: US-EXELIXIS-CABO-19018171

PATIENT
  Age: 68 Year
  Sex: Female

DRUGS (2)
  1. CABOMETYX [Suspect]
     Active Substance: CABOZANTINIB S-MALATE
     Indication: LUNG NEOPLASM MALIGNANT
     Dosage: 60 MG, QD
     Dates: start: 20181215, end: 20181231
  2. CABOMETYX [Suspect]
     Active Substance: CABOZANTINIB S-MALATE
     Indication: BRAIN NEOPLASM
     Dosage: 40 MG, QD
     Dates: start: 20190111

REACTIONS (13)
  - Pain in extremity [Unknown]
  - Dysphonia [Unknown]
  - Constipation [Not Recovered/Not Resolved]
  - Fatigue [Not Recovered/Not Resolved]
  - Weight decreased [Unknown]
  - Dry mouth [Not Recovered/Not Resolved]
  - Stomatitis [Recovering/Resolving]
  - Off label use [Unknown]
  - Palmar-plantar erythrodysaesthesia syndrome [Recovered/Resolved]
  - Blood pressure increased [Unknown]
  - Cough [Not Recovered/Not Resolved]
  - Diarrhoea [Not Recovered/Not Resolved]
  - Mucosal inflammation [Unknown]

NARRATIVE: CASE EVENT DATE: 20190215
